FAERS Safety Report 10173688 (Version 1)
Quarter: 2014Q2

REPORT INFORMATION
  Report Type: Spontaneous
  Country: FR (occurrence: FR)
  Receive Date: 20140515
  Receipt Date: 20140515
  Transmission Date: 20141212
  Serious: Yes (Other)
  Sender: FDA-Public Use
  Company Number: FR-PFIZER INC-2014130149

PATIENT
  Age: 69 Year
  Sex: Male

DRUGS (7)
  1. ALDACTONE [Suspect]
     Dosage: 50 TO 100 MG
     Route: 048
     Dates: start: 201307
  2. ZOLADEX [Suspect]
     Indication: PROSTATE CANCER
     Dosage: UNK
     Route: 058
     Dates: start: 2009, end: 2010
  3. LASILIX FAIBLE [Suspect]
     Dosage: 20 MG, ALTERNATE DAY
     Route: 048
     Dates: start: 201307
  4. AVANDAMET [Suspect]
     Dosage: UNK
     Route: 048
     Dates: start: 2005, end: 2010
  5. JANUMET [Suspect]
     Dosage: UNK
     Dates: start: 2010
  6. AVLOCARDYL [Suspect]
     Dosage: UNK
     Route: 048
     Dates: start: 2010, end: 2010
  7. NORFLOXACIN [Suspect]
     Dosage: UNK
     Route: 048
     Dates: start: 201309

REACTIONS (1)
  - Interstitial lung disease [Not Recovered/Not Resolved]
